FAERS Safety Report 4529639-X (Version None)
Quarter: 2004Q4

REPORT INFORMATION
  Report Type: 
  Country: None (occurrence: None)
  Receive Date: 20041216
  Receipt Date: 20041209
  Transmission Date: 20050328
  Serious: Yes (Other)
  Sender: FDA-Public Use
  Company Number: DE-MERCK-0412DEU00120

PATIENT
  Age: 57 Year
  Sex: Male

DRUGS (2)
  1. VIOXX [Suspect]
     Route: 048
     Dates: start: 20030220, end: 20041005
  2. ALLOPURINOL [Concomitant]
     Route: 048
     Dates: start: 20030121

REACTIONS (2)
  - COMPARTMENT SYNDROME [None]
  - THROMBOSIS [None]
